FAERS Safety Report 18248899 (Version 1)
Quarter: 2020Q3

REPORT INFORMATION
  Report Type: Spontaneous
  Country: US (occurrence: US)
  Receive Date: 20200909
  Receipt Date: 20200909
  Transmission Date: 20201103
  Serious: No
  Sender: FDA-Public Use
  Company Number: US-PERRIGO-20US010943

PATIENT
  Age: 51 Year
  Sex: Female
  Weight: 63.04 kg

DRUGS (2)
  1. ALBUTEROL SULFATE. [Suspect]
     Active Substance: ALBUTEROL SULFATE
     Dosage: UNKNOWN, EVERY 3 TO 4 HOURS, AS NEEDED
     Route: 055
     Dates: start: 20200724, end: 202007
  2. ALBUTEROL SULFATE. [Suspect]
     Active Substance: ALBUTEROL SULFATE
     Indication: CHRONIC OBSTRUCTIVE PULMONARY DISEASE
     Dosage: 90 TO 180 MCG, EVERY 3 TO 4 HOURS, AS NEEDED
     Route: 055
     Dates: start: 20200719, end: 20200724

REACTIONS (2)
  - Underdose [Recovered/Resolved]
  - Device delivery system issue [Unknown]

NARRATIVE: CASE EVENT DATE: 202007
